FAERS Safety Report 5843211-0 (Version None)
Quarter: 2008Q3

REPORT INFORMATION
  Report Type: 
  Country: None (occurrence: None)
  Receive Date: 20080813
  Receipt Date: 20080805
  Transmission Date: 20090109
  Serious: Yes (Other)
  Sender: FDA-Public Use
  Company Number: PHHY2008BR17058

PATIENT
  Age: 16 Year
  Sex: Female

DRUGS (1)
  1. TRILEPTAL [Suspect]
     Dosage: 3 BOXES OF TRILEPTAL

REACTIONS (3)
  - INTENTIONAL OVERDOSE [None]
  - SOMNOLENCE [None]
  - SUICIDE ATTEMPT [None]
